FAERS Safety Report 5214715-9 (Version None)
Quarter: 2006Q4

REPORT INFORMATION
  Report Type: 
  Country: None (occurrence: None)
  Receive Date: 20061113
  Receipt Date: 20060929
  Transmission Date: 20070319
  Serious: Yes (Hospitalization, Other)
  Sender: FDA-Public Use
  Company Number: US-JNJFOC-20061000286

PATIENT
  Age: 66 Year
  Sex: Male
  Weight: 113.3993 kg

DRUGS (2)
  1. LEVAQUIN [Suspect]
     Indication: PROSTATITIS
     Dosage: 750 MG, INTRAVENOUS
     Route: 042
     Dates: start: 20060920, end: 20060922
  2. LEVAQUIN [Suspect]
     Indication: URINARY TRACT INFECTION
     Dosage: 750 MG, INTRAVENOUS
     Route: 042
     Dates: start: 20060920, end: 20060922

REACTIONS (3)
  - SWELLING FACE [None]
  - THROAT TIGHTNESS [None]
  - URTICARIA [None]
